FAERS Safety Report 17050243 (Version 1)
Quarter: 2019Q4

REPORT INFORMATION
  Report Type: Report from Study
  Country: AU (occurrence: AU)
  Receive Date: 20191119
  Receipt Date: 20191119
  Transmission Date: 20200122
  Serious: Yes (Other)
  Sender: FDA-Public Use
  Company Number: PHHY2015AU027661

PATIENT
  Age: 49 Year
  Sex: Male

DRUGS (1)
  1. GILENYA [Suspect]
     Active Substance: FINGOLIMOD HYDROCHLORIDE
     Indication: MULTIPLE SCLEROSIS
     Dosage: UNK UNK, QD
     Route: 048
     Dates: start: 20140301

REACTIONS (7)
  - Bradycardia [Recovered/Resolved]
  - Aspartate aminotransferase increased [Unknown]
  - Musculoskeletal pain [Unknown]
  - Mouth ulceration [Unknown]
  - Lymphocyte count decreased [Unknown]
  - Depression [Unknown]
  - Flank pain [Unknown]

NARRATIVE: CASE EVENT DATE: 20140302
